FAERS Safety Report 6755562-6 (Version None)
Quarter: 2010Q2

REPORT INFORMATION
  Report Type: 
  Country: None (occurrence: None)
  Receive Date: 20100602
  Receipt Date: 20100520
  Transmission Date: 20101027
  Serious: Yes (Hospitalization)
  Sender: FDA-Public Use
  Company Number: URSO-2010-061

PATIENT
  Age: 81 Year
  Sex: Female

DRUGS (3)
  1. URSODIOL [Suspect]
     Indication: HEPATIC FUNCTION ABNORMAL
     Dosage: 100 MG ORAL
     Route: 048
  2. GASMOTIN (MOSAPRIDE CITRATE) [Suspect]
     Indication: REFLUX OESOPHAGITIS
     Dosage: 15 MG ORAL
     Route: 048
  3. PARIET (SODIUM RABEPRAZOLE) [Suspect]
     Indication: REFLUX OESOPHAGITIS
     Dosage: 10MG ORAL
     Route: 048

REACTIONS (1)
  - PEMPHIGOID [None]
